FAERS Safety Report 17963389 (Version 1)
Quarter: 2020Q2

REPORT INFORMATION
  Report Type: Report from Study
  Country: CN (occurrence: CN)
  Receive Date: 20200630
  Receipt Date: 20200630
  Transmission Date: 20200714
  Serious: Yes (Other)
  Sender: FDA-Public Use
  Company Number: CN-ROCHE-2625764

PATIENT
  Sex: Female

DRUGS (6)
  1. DOCETAXEL. [Suspect]
     Active Substance: DOCETAXEL
     Indication: BREAST CANCER
     Route: 065
  2. PERTUZUMAB. [Suspect]
     Active Substance: PERTUZUMAB
     Route: 042
  3. TRASTUZUMAB. [Suspect]
     Active Substance: TRASTUZUMAB
     Indication: BREAST CANCER
     Route: 042
  4. PERTUZUMAB. [Suspect]
     Active Substance: PERTUZUMAB
     Indication: BREAST CANCER
     Route: 042
  5. CARBOPLATIN. [Suspect]
     Active Substance: CARBOPLATIN
     Indication: BREAST CANCER
     Dosage: CARBOPLATIN^S AREA UNDER PLASMA CONCENTRATION-TIME CURVE 5 APPROXIMATELY 6MG/ (ML/MIN)
     Route: 065
  6. TRASTUZUMAB. [Suspect]
     Active Substance: TRASTUZUMAB
     Route: 042

REACTIONS (15)
  - Bone marrow failure [Unknown]
  - Fatigue [Unknown]
  - Taste disorder [Unknown]
  - Bone pain [Unknown]
  - Diarrhoea [Unknown]
  - Constipation [Unknown]
  - Mouth ulceration [Unknown]
  - Palpitations [Unknown]
  - Decreased appetite [Unknown]
  - Visual impairment [Unknown]
  - Nausea [Unknown]
  - Insomnia [Unknown]
  - Myalgia [Unknown]
  - Vomiting [Unknown]
  - Hypoaesthesia [Unknown]
